FAERS Safety Report 5875141-2 (Version None)
Quarter: 2008Q3

REPORT INFORMATION
  Report Type: 
  Country: None (occurrence: None)
  Receive Date: 20080909
  Receipt Date: 20080903
  Transmission Date: 20090109
  Serious: Yes (Hospitalization)
  Sender: FDA-Public Use
  Company Number: D0058164A

PATIENT
  Age: 45 Year
  Sex: Male
  Weight: 72 kg

DRUGS (2)
  1. COMBIVIR [Suspect]
     Indication: HIV INFECTION
     Dosage: 450MG TWICE PER DAY
     Route: 048
     Dates: start: 20000425, end: 20080617
  2. SUSTIVA [Suspect]
     Indication: HIV INFECTION
     Dosage: 200MG AT NIGHT
     Route: 048
     Dates: start: 20000424

REACTIONS (5)
  - ANAEMIA MACROCYTIC [None]
  - BONE MARROW FAILURE [None]
  - HAEMOGLOBIN DECREASED [None]
  - HYPERCHROMIC ANAEMIA [None]
  - MYELODYSPLASTIC SYNDROME [None]
